FAERS Safety Report 10426266 (Version 2)
Quarter: 2014Q3

REPORT INFORMATION
  Report Type: Report from Study
  Country: NL (occurrence: NL)
  Receive Date: 20140903
  Receipt Date: 20140917
  Transmission Date: 20150326
  Serious: Yes (Death, Other)
  Sender: FDA-Public Use
  Company Number: PHHY2014NL109835

PATIENT
  Sex: Male

DRUGS (2)
  1. SANDOSTATIN LAR DEPOT [Suspect]
     Active Substance: OCTREOTIDE ACETATE
     Indication: OFF LABEL USE
  2. SANDOSTATIN LAR DEPOT [Suspect]
     Active Substance: OCTREOTIDE ACETATE
     Indication: GASTROINTESTINAL DISORDER
     Dosage: 10 MG/ 2ML (ONCE EVERY 4 WEEKS), POWDER AND SOLVENT FOR SUSPENSION FOR INJECTION
     Route: 030

REACTIONS (2)
  - Renal failure [Fatal]
  - Myocardial infarction [Unknown]
